FAERS Safety Report 23828232 (Version 1)
Quarter: 2024Q2

REPORT INFORMATION
  Report Type: Spontaneous
  Country: CN (occurrence: CN)
  Receive Date: 20240508
  Receipt Date: 20240508
  Transmission Date: 20240716
  Serious: Yes (Other)
  Sender: FDA-Public Use
  Company Number: CN-ABBVIE-5742067

PATIENT
  Age: 51 Year
  Sex: Male
  Weight: 62 kg

DRUGS (10)
  1. LOPINAVIR\RITONAVIR [Suspect]
     Active Substance: LOPINAVIR\RITONAVIR
     Indication: Prophylaxis against HIV infection
     Route: 048
     Dates: start: 20181128, end: 20240424
  2. LAMIVUDINE [Concomitant]
     Active Substance: LAMIVUDINE
     Indication: Prophylaxis against HIV infection
     Route: 048
     Dates: start: 20181128, end: 20240430
  3. Tenof tenofovir disoproxil fumarate [Concomitant]
     Indication: Prophylaxis against HIV infection
     Route: 048
     Dates: start: 20181128, end: 20240430
  4. SODIUM CHLORIDE [Concomitant]
     Active Substance: SODIUM CHLORIDE
     Indication: Product used for unknown indication
     Dosage: 0.9 %
  5. BETAHISTINE HYDROCHLORIDE AND SODIUM CHLORIDE [Concomitant]
     Indication: Product used for unknown indication
     Dosage: 250 ML + 20 MG?IVGTT
  6. MANNITOL [Concomitant]
     Active Substance: MANNITOL
     Indication: Product used for unknown indication
     Dosage: (250ML: 50 MG)
  7. NICOTINIC ACID [Concomitant]
     Active Substance: NIACIN
     Indication: Product used for unknown indication
  8. ATORVASTATIN CALCIUM [Concomitant]
     Active Substance: ATORVASTATIN CALCIUM
     Indication: Product used for unknown indication
     Dosage: EVERY NIGHT
     Route: 048
  9. ASPIRIN [Concomitant]
     Active Substance: ASPIRIN
     Indication: Product used for unknown indication
     Dosage: ENTERIC-COATED
     Route: 048
  10. METFORMIN HYDROCHLORIDE [Concomitant]
     Active Substance: METFORMIN HYDROCHLORIDE
     Indication: Lipids increased
     Dosage: SUSTAINED-RELEASE

REACTIONS (3)
  - Cerebral infarction [Recovering/Resolving]
  - Hyperlipidaemia [Recovering/Resolving]
  - Muscular weakness [Unknown]

NARRATIVE: CASE EVENT DATE: 20240423
